FAERS Safety Report 20163984 (Version 1)
Quarter: 2021Q4

REPORT INFORMATION
  Report Type: Spontaneous
  Country: US (occurrence: US)
  Receive Date: 20211209
  Receipt Date: 20211209
  Transmission Date: 20220303
  Serious: Yes (Other)
  Sender: FDA-Public Use
  Company Number: US-ASTELLAS-2021US046967

PATIENT
  Age: 93 Year
  Sex: Female

DRUGS (3)
  1. MYRBETRIQ [Suspect]
     Active Substance: MIRABEGRON
     Indication: Product used for unknown indication
     Route: 065
  2. MYRBETRIQ [Suspect]
     Active Substance: MIRABEGRON
     Indication: Product used for unknown indication
     Route: 065
  3. MACRODANTIN [Suspect]
     Active Substance: NITROFURANTOIN
     Indication: Product used for unknown indication
     Dosage: UNK UNK, UNKNOWN FREQ. (AS A MAINTENANCE ANTIBIOTIC AT NIGHTTIME)
     Route: 065

REACTIONS (5)
  - Mental impairment [Unknown]
  - Hallucination [Unknown]
  - Gait inability [Unknown]
  - Pollakiuria [Unknown]
  - Nocturia [Unknown]
